FAERS Safety Report 8068499-X (Version None)
Quarter: 2012Q1

REPORT INFORMATION
  Report Type: 
  Country: None (occurrence: None)
  Receive Date: 20120124
  Receipt Date: 20111101
  Transmission Date: 20120608
  Serious: No
  Sender: FDA-Public Use
  Company Number: US-AMGEN-USASP2011029387

PATIENT
  Age: 66 Year
  Sex: Female

DRUGS (8)
  1. INFLUENZA VACCINES [Concomitant]
     Dosage: UNK
     Dates: start: 20101010
  2. DIOVAN [Concomitant]
     Indication: HYPERTENSION
  3. PROLIA [Suspect]
  4. GABAPENTIN [Concomitant]
  5. PROLIA [Suspect]
     Indication: OSTEOPOROSIS POSTMENOPAUSAL
     Dosage: 60 MG, Q6MO
     Dates: start: 20100922
  6. CYMBALTA [Concomitant]
  7. BISPHOSPHONATES [Concomitant]
  8. HUMIRA [Concomitant]
     Indication: RHEUMATOID ARTHRITIS
     Dosage: UNK
     Dates: start: 20101013

REACTIONS (1)
  - RHEUMATOID ARTHRITIS [None]
